FAERS Safety Report 5502423-6 (Version None)
Quarter: 2007Q4

REPORT INFORMATION
  Report Type: 
  Country: None (occurrence: None)
  Receive Date: 20071030
  Receipt Date: 20071023
  Transmission Date: 20080405
  Serious: Yes (Other)
  Sender: FDA-Public Use
  Company Number: JP-MERCK-0710USA05744

PATIENT
  Age: 21 Year
  Sex: Female

DRUGS (2)
  1. PEPCID [Suspect]
     Indication: GASTRITIS
     Route: 048
     Dates: start: 20070505, end: 20071019
  2. TEGRETOL [Concomitant]
     Route: 048
     Dates: start: 20070505, end: 20071019

REACTIONS (1)
  - INTERSTITIAL LUNG DISEASE [None]
